FAERS Safety Report 6573664-4 (Version None)
Quarter: 2010Q1

REPORT INFORMATION
  Report Type: 
  Country: None (occurrence: None)
  Receive Date: 20100208
  Receipt Date: 20100201
  Transmission Date: 20100710
  Serious: Yes (Hospitalization)
  Sender: FDA-Public Use
  Company Number: FR-SANOFI-AVENTIS-2010SA005669

PATIENT
  Age: 88 Year
  Sex: Female

DRUGS (7)
  1. LASILIX [Suspect]
     Route: 048
  2. STILNOX [Suspect]
     Indication: INSOMNIA
     Route: 048
  3. CARDENSIEL [Suspect]
     Route: 048
  4. HEMIGOXINE NATIVELLE [Suspect]
     Route: 048
     Dates: end: 20090124
  5. ALLOPURINOL [Concomitant]
     Indication: HYPERURICAEMIA
     Route: 048
  6. PREVISCAN [Concomitant]
     Indication: DRUG USE FOR UNKNOWN INDICATION
     Route: 048
  7. COVERSYL /FRA/ [Concomitant]
     Route: 048
     Dates: end: 20090124

REACTIONS (4)
  - AGGRESSION [None]
  - CONFUSIONAL STATE [None]
  - HALLUCINATION [None]
  - PERSECUTORY DELUSION [None]
